FAERS Safety Report 5411965-3 (Version None)
Quarter: 2007Q3

REPORT INFORMATION
  Report Type: 
  Country: None (occurrence: None)
  Receive Date: 20070813
  Receipt Date: 20070730
  Transmission Date: 20080115
  Serious: Yes (Other)
  Sender: FDA-Public Use
  Company Number: PHEH2007US10490

PATIENT
  Age: 75 Year
  Sex: Female

DRUGS (1)
  1. ZELNORM [Suspect]
     Dates: start: 20070301, end: 20070301

REACTIONS (3)
  - CEREBROVASCULAR ACCIDENT [None]
  - HEADACHE [None]
  - SPEECH DISORDER [None]
